FAERS Safety Report 25412050 (Version 1)
Quarter: 2025Q2

REPORT INFORMATION
  Report Type: Spontaneous
  Country: US (occurrence: US)
  Receive Date: 20250609
  Receipt Date: 20250609
  Transmission Date: 20250717
  Serious: Yes (Hospitalization, Other)
  Sender: BAYER HEALTHCARE PHARMACEUTICALS INC.
  Company Number: US-BAYER-2025A071679

PATIENT
  Age: 48 Year
  Sex: Female
  Weight: 45.805 kg

DRUGS (18)
  1. ADEMPAS [Suspect]
     Active Substance: RIOCIGUAT
     Indication: Product used for unknown indication
  2. ORENITRAM [Concomitant]
     Active Substance: TREPROSTINIL
     Indication: Pulmonary arterial hypertension
     Dosage: 7 MG, TID
  3. ORENITRAM [Concomitant]
     Active Substance: TREPROSTINIL
     Indication: Pulmonary arterial hypertension
     Route: 048
     Dates: start: 20240801
  4. ORENITRAM [Concomitant]
     Active Substance: TREPROSTINIL
     Indication: Pulmonary arterial hypertension
  5. ELIQUIS [Concomitant]
     Active Substance: APIXABAN
  6. ERGOCALCIFEROL [Concomitant]
     Active Substance: ERGOCALCIFEROL
  7. FAMOTIDINE [Concomitant]
     Active Substance: FAMOTIDINE
  8. METOPROLOL SUCCINATE [Concomitant]
     Active Substance: METOPROLOL SUCCINATE
  9. FLUTICASONE PROPIONATE [Concomitant]
     Active Substance: FLUTICASONE PROPIONATE
  10. CALCIUM ACETATE [Concomitant]
     Active Substance: CALCIUM ACETATE
  11. LISINOPRIL [Concomitant]
     Active Substance: LISINOPRIL
  12. SOTATERCEPT [Concomitant]
     Active Substance: SOTATERCEPT
  13. OXYGEN [Concomitant]
     Active Substance: OXYGEN
  14. Nitrofurantoin mono./macro. [Concomitant]
  15. LIDOCAINE\PRILOCAINE [Concomitant]
     Active Substance: LIDOCAINE\PRILOCAINE
  16. SILDENAFIL CITRATE [Concomitant]
     Active Substance: SILDENAFIL CITRATE
  17. REMODULIN [Concomitant]
     Active Substance: TREPROSTINIL
  18. EPOPROSTENOL [Concomitant]
     Active Substance: EPOPROSTENOL

REACTIONS (5)
  - Dialysis hypotension [None]
  - Malabsorption [None]
  - Platelet count decreased [None]
  - Drug intolerance [None]
  - Gastrointestinal disorder [None]
